FAERS Safety Report 16597486 (Version 4)
Quarter: 2021Q1

REPORT INFORMATION
  Report Type: Report from Study
  Country: FR (occurrence: FR)
  Receive Date: 20190719
  Receipt Date: 20210216
  Transmission Date: 20210419
  Serious: Yes (Life-Threatening, Hospitalization, Disabling, Other)
  Sender: FDA-Public Use
  Company Number: FR-BRISTOL-MYERS SQUIBB COMPANY-BMS-2019-068979

PATIENT
  Sex: Male
  Weight: 141 kg

DRUGS (2)
  1. NIVOLUMAB [Suspect]
     Active Substance: NIVOLUMAB
     Indication: RENAL CANCER
     Dosage: 240 MILLIGRAM
     Route: 065
     Dates: start: 20190115
  2. VOTRIENT [Suspect]
     Active Substance: PAZOPANIB HYDROCHLORIDE
     Indication: RENAL CANCER METASTATIC
     Dosage: 800 MILLIGRAM, QD
     Route: 048
     Dates: start: 20180820, end: 20180905

REACTIONS (5)
  - Hyperbilirubinaemia [Recovered/Resolved]
  - Proteinuria [Recovered/Resolved]
  - Thrombocytopenia [Recovering/Resolving]
  - Cellulitis gangrenous [Recovered/Resolved]
  - Asthenia [Recovering/Resolving]

NARRATIVE: CASE EVENT DATE: 20180904
